FAERS Safety Report 9388014 (Version 1)
Quarter: 2013Q3

REPORT INFORMATION
  Report Type: Spontaneous
  Country: TR (occurrence: None)
  Receive Date: 20130703
  Receipt Date: 20130703
  Transmission Date: 20140515
  Serious: Yes (Other)
  Sender: FDA-Public Use
  Company Number: 2013P1010860

PATIENT
  Age: 10 Year
  Sex: Male
  Weight: 90 kg

DRUGS (1)
  1. RISPERIDONE [Suspect]

REACTIONS (5)
  - Blood triglycerides increased [None]
  - Obesity [None]
  - Irritability [None]
  - Psychomotor hyperactivity [None]
  - Low density lipoprotein increased [None]
